FAERS Safety Report 7762262-2 (Version None)
Quarter: 2011Q3

REPORT INFORMATION
  Report Type: 
  Country: None (occurrence: None)
  Receive Date: 20110920
  Receipt Date: 20110915
  Transmission Date: 20111222
  Serious: Yes (Other)
  Sender: FDA-Public Use
  Company Number: US-AMGEN-USASP2011047584

PATIENT
  Age: 60 Year
  Sex: Female

DRUGS (7)
  1. KLONOPIN [Concomitant]
  2. HORMONES [Concomitant]
  3. INDOCIN                            /00003801/ [Concomitant]
  4. NEUPOGEN [Suspect]
  5. MULTIVITAMIN                       /00097801/ [Concomitant]
  6. NEUPOGEN [Suspect]
     Indication: HAEMATOPOIETIC STEM CELL MOBILISATION
     Dates: start: 20110911, end: 20110914
  7. PEPCID [Concomitant]

REACTIONS (2)
  - CHEST DISCOMFORT [None]
  - DYSPNOEA [None]
